FAERS Safety Report 4883989-6 (Version None)
Quarter: 2006Q1

REPORT INFORMATION
  Report Type: 
  Country: None (occurrence: None)
  Receive Date: 20060112
  Receipt Date: 20060103
  Transmission Date: 20060701
  Serious: Yes (Other)
  Sender: FDA-Public Use
  Company Number: 200511855BBE

PATIENT
  Age: 45 Year
  Sex: Female
  Weight: 80 kg

DRUGS (4)
  1. GAMUNEX [Suspect]
     Indication: IMMUNOSUPPRESSION
     Dosage: Q1 MON; Q1MON
  2. GAMUNEX [Suspect]
  3. GANCICLOVIR [Concomitant]
  4. PREDNISONE [Concomitant]

REACTIONS (3)
  - CHILLS [None]
  - DYSPNOEA [None]
  - HYPOXIA [None]
